FAERS Safety Report 7043902-2 (Version None)
Quarter: 2010Q4

REPORT INFORMATION
  Report Type: 
  Country: None (occurrence: None)
  Receive Date: 20101012
  Receipt Date: 20101012
  Transmission Date: 20110411
  Serious: Yes (Other)
  Sender: FDA-Public Use
  Company Number: None

PATIENT
  Sex: Female

DRUGS (1)
  1. ENBREL [Suspect]
     Indication: RHEUMATOID ARTHRITIS
     Dosage: 50MG WEEKLY SQ
     Route: 058
     Dates: start: 20100913, end: 20101008

REACTIONS (4)
  - FATIGUE [None]
  - IMPAIRED DRIVING ABILITY [None]
  - MIDDLE INSOMNIA [None]
  - MUSCLE SPASMS [None]
